FAERS Safety Report 22618694 (Version 1)
Quarter: 2023Q2

REPORT INFORMATION
  Report Type: Spontaneous
  Country: CA (occurrence: CA)
  Receive Date: 20230620
  Receipt Date: 20230620
  Transmission Date: 20230722
  Serious: Yes (Other)
  Sender: FDA-Public Use
  Company Number: CA-ORGANON-O2306CAN002390

PATIENT
  Age: 5 Decade
  Sex: Female

DRUGS (6)
  1. SINGULAIR [Suspect]
     Active Substance: MONTELUKAST SODIUM
     Indication: Systemic mastocytosis
     Dosage: UNK; DOSAGE FORM: NOT SPECIFIED
     Route: 065
  2. CETIRIZINE [Suspect]
     Active Substance: CETIRIZINE HYDROCHLORIDE
     Indication: Systemic mastocytosis
     Dosage: UNK
     Route: 065
  3. KETOTIFEN [Suspect]
     Active Substance: KETOTIFEN
     Indication: Systemic mastocytosis
     Dosage: UNK
     Route: 065
  4. LORATADINE [Suspect]
     Active Substance: LORATADINE
     Indication: Systemic mastocytosis
     Dosage: UNK, DOSAGE FORM: NOT SPECIFIED
     Route: 065
  5. RANITIDINE [Suspect]
     Active Substance: RANITIDINE
     Indication: Systemic mastocytosis
     Dosage: UNK
     Route: 065
  6. EPINEPHRINE [Concomitant]
     Active Substance: EPINEPHRINE
     Indication: Anaphylactic reaction
     Dosage: UNK; DOSAGE FORM: NOT SPECIFIED
     Route: 065

REACTIONS (1)
  - Drug ineffective [Unknown]
